FAERS Safety Report 21676614 (Version 1)
Quarter: 2022Q4

REPORT INFORMATION
  Report Type: Report from Study
  Country: US (occurrence: US)
  Receive Date: 20221202
  Receipt Date: 20221202
  Transmission Date: 20230113
  Serious: No
  Sender: FDA-Public Use
  Company Number: US-ABBVIE-4172380

PATIENT
  Sex: Male

DRUGS (1)
  1. HUMIRA [Suspect]
     Active Substance: ADALIMUMAB
     Indication: Hidradenitis
     Dosage: CF FORM STRENGTH- 40 MG
     Route: 058

REACTIONS (3)
  - Haemorrhage [Recovering/Resolving]
  - Weight decreased [Recovering/Resolving]
  - Headache [Recovering/Resolving]
